FAERS Safety Report 7643221-7 (Version None)
Quarter: 2011Q3

REPORT INFORMATION
  Report Type: 
  Country: None (occurrence: None)
  Receive Date: 20110729
  Receipt Date: 20110718
  Transmission Date: 20111222
  Serious: No
  Sender: FDA-Public Use
  Company Number: US-BIOGENIDEC-2011BI017564

PATIENT
  Sex: Female

DRUGS (2)
  1. TYSABRI [Suspect]
     Indication: MULTIPLE SCLEROSIS
     Route: 042
     Dates: start: 20090929, end: 20110228
  2. AVONEX [Concomitant]
     Indication: MULTIPLE SCLEROSIS
     Route: 030

REACTIONS (11)
  - HYPOAESTHESIA [None]
  - PARAESTHESIA [None]
  - GAIT DISTURBANCE [None]
  - DRUG INEFFECTIVE [None]
  - BLINDNESS [None]
  - NUCLEAR MAGNETIC RESONANCE IMAGING ABNORMAL [None]
  - LOSS OF CONTROL OF LEGS [None]
  - FALL [None]
  - MUSCULOSKELETAL DISORDER [None]
  - COORDINATION ABNORMAL [None]
  - MULTIPLE SCLEROSIS [None]
